FAERS Safety Report 5968751-5 (Version None)
Quarter: 2008Q4

REPORT INFORMATION
  Report Type: 
  Country: None (occurrence: None)
  Receive Date: 20081126
  Receipt Date: 20081121
  Transmission Date: 20090506
  Serious: Yes (Hospitalization)
  Sender: FDA-Public Use
  Company Number: US-GILEAD-2008-0019153

PATIENT
  Sex: Male
  Weight: 91.708 kg

DRUGS (13)
  1. LETAIRIS [Suspect]
     Indication: PULMONARY ARTERIAL HYPERTENSION
     Route: 048
     Dates: start: 20080902
  2. OXYGEN [Concomitant]
  3. COUMADIN [Concomitant]
  4. LASIX [Concomitant]
  5. PREDNISONE TAB [Concomitant]
  6. SPIRIVA [Concomitant]
  7. XOPENEX [Concomitant]
  8. ASPIRIN [Concomitant]
  9. PAXIL [Concomitant]
  10. FLOMAX [Concomitant]
  11. POTASSIUM CHLORIDE [Concomitant]
  12. CALCIUM [Concomitant]
  13. MULTI-VITAMIN [Concomitant]

REACTIONS (1)
  - HEART RATE INCREASED [None]
